FAERS Safety Report 14924353 (Version 1)
Quarter: 2018Q2

REPORT INFORMATION
  Report Type: Report from Study
  Country: US (occurrence: US)
  Receive Date: 20180522
  Receipt Date: 20180522
  Transmission Date: 20180711
  Serious: Yes (Other)
  Sender: FDA-Public Use
  Company Number: US-GILEAD-2018-0339610

PATIENT
  Age: 58 Year
  Sex: Male

DRUGS (4)
  1. OXYCODONE [Concomitant]
     Active Substance: OXYCODONE
  2. LEDIPASVIR/SOFOSBUVIR [Suspect]
     Active Substance: LEDIPASVIR\SOFOSBUVIR
     Indication: PRODUCT USED FOR UNKNOWN INDICATION
     Dosage: 1 DF, UNK
     Route: 065
     Dates: start: 20180427
  3. HYDROCO/APAP [Concomitant]
     Active Substance: ACETAMINOPHEN\HYDROCODONE
  4. XANAX [Concomitant]
     Active Substance: ALPRAZOLAM

REACTIONS (1)
  - Lung neoplasm malignant [Not Recovered/Not Resolved]
